FAERS Safety Report 26084590 (Version 1)
Quarter: 2025Q4

REPORT INFORMATION
  Report Type: Report from Study
  Country: IL (occurrence: IL)
  Receive Date: 20251124
  Receipt Date: 20251124
  Transmission Date: 20260118
  Serious: Yes (Other)
  Sender: ABBVIE
  Company Number: IL-ABBVIE-5566126

PATIENT
  Age: 32 Year
  Sex: Female

DRUGS (3)
  1. SKYRIZI [Suspect]
     Active Substance: RISANKIZUMAB-RZAA
     Indication: Crohn^s disease
     Dosage: 360MG OBI ?FORM STRENGTH: 360MG
     Route: 058
     Dates: start: 20230802
  2. SKYRIZI [Suspect]
     Active Substance: RISANKIZUMAB-RZAA
     Indication: Crohn^s disease
     Route: 042
  3. PITOCIN [Suspect]
     Active Substance: OXYTOCIN
     Indication: Product used for unknown indication
     Route: 065

REACTIONS (19)
  - Postpartum haemorrhage [Recovered/Resolved]
  - Pruritus [Recovered/Resolved]
  - Anal incontinence [Not Recovered/Not Resolved]
  - Pruritus [Recovered/Resolved]
  - Increased appetite [Recovered/Resolved]
  - Frequent bowel movements [Recovered/Resolved]
  - Dizziness [Recovered/Resolved]
  - Maternal exposure during pregnancy [Unknown]
  - Constipation [Recovered/Resolved]
  - Weight decreased [Unknown]
  - Diarrhoea [Not Recovered/Not Resolved]
  - Coronavirus test positive [Recovered/Resolved]
  - Malaise [Not Recovered/Not Resolved]
  - Dysstasia [Unknown]
  - Nasal congestion [Not Recovered/Not Resolved]
  - Influenza [Recovered/Resolved]
  - Rash [Recovered/Resolved]
  - Illness [Recovered/Resolved]
  - Arthralgia [Recovered/Resolved]

NARRATIVE: CASE EVENT DATE: 20230101
